FAERS Safety Report 9250265 (Version 3)
Quarter: 2013Q3

REPORT INFORMATION
  Report Type: Spontaneous
  Country: US (occurrence: US)
  Receive Date: 20130424
  Receipt Date: 20130927
  Transmission Date: 20140515
  Serious: Yes (Hospitalization)
  Sender: FDA-Public Use
  Company Number: US-ASTRAZENECA-2013SE27358

PATIENT
  Age: 61 Year
  Sex: Female
  Weight: 90.7 kg

DRUGS (21)
  1. NEXIUM [Suspect]
     Indication: GASTROOESOPHAGEAL REFLUX DISEASE
     Route: 048
     Dates: start: 2003, end: 2007
  2. NEXIUM [Suspect]
     Indication: GASTROOESOPHAGEAL REFLUX DISEASE
     Route: 048
     Dates: start: 20031210
  3. OMEPRAZOLE [Suspect]
     Route: 048
     Dates: start: 20071215
  4. OMEPRAZOLE [Suspect]
     Route: 048
     Dates: start: 2008
  5. ZANTAC [Concomitant]
     Dates: start: 2006
  6. PRIMAQUINE [Concomitant]
     Indication: HORMONE REPLACEMENT THERAPY
     Dates: start: 1992, end: 2002
  7. TUMS [Concomitant]
     Dosage: BID
  8. GAVISCON [Concomitant]
     Dosage: BID
  9. PEPTO-BISMOL [Concomitant]
     Dosage: TEASPOON, BID
  10. ROLAIDS [Concomitant]
     Dosage: BID
  11. PREMARIN [Concomitant]
     Indication: HORMONE REPLACEMENT THERAPY
     Dates: start: 1992, end: 2002
  12. ASPIRIN [Concomitant]
  13. SINGULAIR [Concomitant]
  14. METOPROLOL [Concomitant]
  15. SYNTHROID [Concomitant]
  16. LORAZEPAM [Concomitant]
  17. AMITRIPTYLINE [Concomitant]
  18. AMBIEN [Concomitant]
  19. ZYRTEC [Concomitant]
  20. SALSALATE [Concomitant]
  21. LASIX [Concomitant]

REACTIONS (15)
  - Pneumonia [Unknown]
  - Fall [Unknown]
  - Ankle fracture [Unknown]
  - Upper limb fracture [Unknown]
  - Staphylococcal infection [Unknown]
  - Osteoporosis [Unknown]
  - Bone density decreased [Unknown]
  - Radius fracture [Unknown]
  - Bone disorder [Unknown]
  - Multiple fractures [Unknown]
  - Osteopenia [Unknown]
  - Arthritis [Unknown]
  - Diabetes mellitus [Unknown]
  - Sleep disorder [Unknown]
  - Depression [Unknown]
